FAERS Safety Report 18386130 (Version 1)
Quarter: 2020Q4

REPORT INFORMATION
  Report Type: Spontaneous
  Country: ES (occurrence: ES)
  Receive Date: 20201015
  Receipt Date: 20201015
  Transmission Date: 20210114
  Serious: Yes (Other)
  Sender: FDA-Public Use
  Company Number: ES-ACCORD-205123

PATIENT
  Age: 25 Year
  Sex: Female

DRUGS (5)
  1. BENDAMUSTINE/BENDAMUSTINE HYDROCHLORIDE [Suspect]
     Active Substance: BENDAMUSTINE HYDROCHLORIDE
     Indication: HODGKIN^S DISEASE
     Dosage: BENDAMUSTINE (8103A)
     Route: 042
     Dates: start: 20200805
  2. OMEPRAZOLE. [Concomitant]
     Active Substance: OMEPRAZOLE
     Indication: LYMPHOMA
     Dosage: STRENGTH: 20 MG, 56 CAPSULES
     Route: 048
     Dates: start: 20200806
  3. DECAPEPTYL [Concomitant]
     Indication: LYMPHOMA
     Dosage: MONTHLY 3.75 MG, 1 VIAL + 1 AMPOULE OF SOLVENT
     Route: 030
     Dates: start: 20200806
  4. PARACETAMOL [Concomitant]
     Active Substance: ACETAMINOPHEN
     Indication: LYMPHOMA
     Dosage: STRENGTH: 1000 MG, 40 TABLETS
     Route: 048
     Dates: start: 20200805
  5. ALLOPURINOL. [Concomitant]
     Active Substance: ALLOPURINOL
     Indication: LYMPHOMA
     Dosage: STRENGTH: 100 MG, 100 TABLETS
     Route: 048
     Dates: start: 20200806

REACTIONS (2)
  - Off label use [Unknown]
  - Toxic skin eruption [Recovered/Resolved]

NARRATIVE: CASE EVENT DATE: 20200902
